FAERS Safety Report 6012844-3 (Version None)
Quarter: 2008Q4

REPORT INFORMATION
  Report Type: 
  Country: None (occurrence: None)
  Receive Date: 20081219
  Receipt Date: 20081208
  Transmission Date: 20090506
  Serious: Yes (Disabling, Other)
  Sender: FDA-Public Use
  Company Number: FR-JNJFOC-20081100600

PATIENT
  Age: 53 Year
  Sex: Male
  Weight: 83 kg

DRUGS (8)
  1. REMICADE [Suspect]
     Dosage: DOSE 4, WEEK 14
     Route: 042
  2. REMICADE [Suspect]
     Dosage: DOSE 3, WEEK 6
     Route: 042
  3. REMICADE [Suspect]
     Dosage: DOSE 2, WEEK 2
     Route: 042
  4. REMICADE [Suspect]
     Indication: COLITIS ULCERATIVE
     Dosage: DOSE 1, WEEK 1
     Route: 042
  5. CORTICOSTEROIDS [Suspect]
     Indication: DRUG USE FOR UNKNOWN INDICATION
  6. IMUREL [Concomitant]
  7. NOVONORM [Concomitant]
  8. ATACAND [Concomitant]

REACTIONS (4)
  - ARTHRALGIA [None]
  - ARTHRITIS [None]
  - MYALGIA [None]
  - STEROID WITHDRAWAL SYNDROME [None]
